FAERS Safety Report 6104209-0 (Version None)
Quarter: 2009Q1

REPORT INFORMATION
  Report Type: 
  Country: None (occurrence: None)
  Receive Date: 20090305
  Receipt Date: 20090225
  Transmission Date: 20090719
  Serious: Yes (Other)
  Sender: FDA-Public Use
  Company Number: US-PFIZER INC-2009176459

PATIENT
  Sex: Male
  Weight: 63.502 kg

DRUGS (4)
  1. DETROL LA [Suspect]
     Indication: HYPERTONIC BLADDER
     Dosage: 2 MG, 1X/DAY
     Dates: start: 20081201
  2. ALL OTHER THERAPEUTIC PRODUCTS [Concomitant]
     Dosage: UNK
  3. ZOCOR [Concomitant]
     Dosage: UNK
  4. ANTIDEPRESSANTS [Concomitant]

REACTIONS (1)
  - HYPERTENSION [None]
